FAERS Safety Report 4737377-3 (Version None)
Quarter: 2005Q3

REPORT INFORMATION
  Report Type: 
  Country: None (occurrence: None)
  Receive Date: 20050805
  Receipt Date: 20050725
  Transmission Date: 20060218
  Serious: Yes (Death, Other)
  Sender: FDA-Public Use
  Company Number: 2005106569

PATIENT
  Sex: Male

DRUGS (2)
  1. NORVASC [Suspect]
     Indication: HYPERTENSION
     Dosage: 10 M G (1 IN 1 D), ORAL
     Route: 048
  2. INSULIN [Concomitant]

REACTIONS (4)
  - DIABETES MELLITUS [None]
  - ORAL INTAKE REDUCED [None]
  - VISUAL ACUITY REDUCED [None]
  - WEIGHT DECREASED [None]
